FAERS Safety Report 6703465-5 (Version None)
Quarter: 2010Q2

REPORT INFORMATION
  Report Type: 
  Country: None (occurrence: None)
  Receive Date: 20100428
  Receipt Date: 20100426
  Transmission Date: 20101027
  Serious: Yes (Death, Hospitalization, Other)
  Sender: FDA-Public Use
  Company Number: 2007SP017607

PATIENT
  Age: 38 Year
  Sex: Female
  Weight: 50 kg

DRUGS (17)
  1. TEMODAL [Suspect]
     Indication: ANAPLASTIC ASTROCYTOMA
     Dosage: 200 MG/M2; QD; PO; SEE IMAGE
     Route: 048
     Dates: start: 20060902, end: 20060906
  2. TEMODAL [Suspect]
     Indication: ANAPLASTIC ASTROCYTOMA
     Dosage: 200 MG/M2; QD; PO; SEE IMAGE
     Route: 048
     Dates: start: 20060930, end: 20061004
  3. TEMODAL [Suspect]
     Indication: ANAPLASTIC ASTROCYTOMA
     Dosage: 200 MG/M2; QD; PO; SEE IMAGE
     Route: 048
     Dates: start: 20061103, end: 20061107
  4. TEMODAL [Suspect]
     Indication: ANAPLASTIC ASTROCYTOMA
     Dosage: 200 MG/M2; QD; PO; SEE IMAGE
     Route: 048
     Dates: start: 20061201, end: 20061205
  5. TEMODAL [Suspect]
     Indication: ANAPLASTIC ASTROCYTOMA
     Dosage: 200 MG/M2; QD; PO; SEE IMAGE
     Route: 048
     Dates: start: 20061228, end: 20070101
  6. TEMODAL [Suspect]
     Indication: ANAPLASTIC ASTROCYTOMA
     Dosage: 200 MG/M2; QD; PO; SEE IMAGE
     Route: 048
     Dates: start: 20070126, end: 20070130
  7. PHENOBARBITAL TAB [Suspect]
     Indication: DRUG USE FOR UNKNOWN INDICATION
     Dosage: PO
     Route: 048
  8. COTRIM [Concomitant]
  9. RINDERON [Concomitant]
  10. GASTER D [Concomitant]
  11. NAVOBAN [Concomitant]
  12. MAGNESIUM OXIDE [Concomitant]
  13. PURSENNID [Concomitant]
  14. ALOSENN [Concomitant]
  15. NEW LECICARBON [Concomitant]
  16. RINDERON [Concomitant]
  17. GLYCEOL [Concomitant]

REACTIONS (11)
  - ANAPLASTIC ASTROCYTOMA [None]
  - CONVULSION [None]
  - DEHYDRATION [None]
  - HEADACHE [None]
  - MALIGNANT NEOPLASM PROGRESSION [None]
  - NAUSEA [None]
  - NEUTROPHIL COUNT DECREASED [None]
  - PLATELET COUNT DECREASED [None]
  - PYREXIA [None]
  - VOMITING [None]
  - WHITE BLOOD CELL COUNT DECREASED [None]
